FAERS Safety Report 6845283-3 (Version None)
Quarter: 2010Q3

REPORT INFORMATION
  Report Type: 
  Country: None (occurrence: None)
  Receive Date: 20100715
  Receipt Date: 20070815
  Transmission Date: 20110219
  Serious: No
  Sender: FDA-Public Use
  Company Number: US-PFIZER INC-2007068857

PATIENT
  Sex: Female
  Weight: 86.2 kg

DRUGS (7)
  1. CHANTIX [Suspect]
     Indication: SMOKING CESSATION THERAPY
     Dates: start: 20070628
  2. ALPRAZOLAM [Concomitant]
  3. GABAPENTIN [Concomitant]
  4. OXYMORPHONE [Concomitant]
  5. AMITRIPTYLINE HYDROCHLORIDE [Concomitant]
  6. HYDROMORPHONE [Concomitant]
     Indication: BACK PAIN
  7. PREMARIN [Concomitant]

REACTIONS (1)
  - NAUSEA [None]
